FAERS Safety Report 18416565 (Version 1)
Quarter: 2020Q4

REPORT INFORMATION
  Report Type: Report from Study
  Country: AR (occurrence: AR)
  Receive Date: 20201022
  Receipt Date: 20201022
  Transmission Date: 20210114
  Serious: Yes (Hospitalization)
  Sender: FDA-Public Use
  Company Number: NVSC2020AR218681

PATIENT
  Age: 13 Year
  Sex: Female

DRUGS (1)
  1. REVOLADE [Suspect]
     Active Substance: ELTROMBOPAG
     Indication: IMMUNE THROMBOCYTOPENIA
     Dosage: 25 MG, QD
     Route: 048
     Dates: start: 20200620

REACTIONS (4)
  - Viral infection [Unknown]
  - Platelet count decreased [Recovered/Resolved]
  - Rash [Unknown]
  - Gingival swelling [Not Recovered/Not Resolved]

NARRATIVE: CASE EVENT DATE: 20200703
